FAERS Safety Report 21986808 (Version 1)
Quarter: 2023Q1

REPORT INFORMATION
  Report Type: Spontaneous
  Country: US (occurrence: US)
  Receive Date: 20230213
  Receipt Date: 20230213
  Transmission Date: 20230418
  Serious: No
  Sender: FDA-Public Use
  Company Number: US-PFIZER INC-202300060061

PATIENT
  Age: 46 Year
  Sex: Female

DRUGS (1)
  1. EXEMESTANE [Suspect]
     Active Substance: EXEMESTANE
     Dosage: UNK

REACTIONS (3)
  - Postmenopause [Unknown]
  - Anxiety [Recovering/Resolving]
  - Depression [Recovering/Resolving]
